FAERS Safety Report 14438493 (Version 2)
Quarter: 2018Q1

REPORT INFORMATION
  Report Type: Spontaneous
  Country: LB (occurrence: LB)
  Receive Date: 20180125
  Receipt Date: 20180319
  Transmission Date: 20180509
  Serious: Yes (Hospitalization)
  Sender: FDA-Public Use
  Company Number: LB-CELGENEUS-LBN-20180106108

PATIENT
  Age: 50 Year
  Sex: Female

DRUGS (1)
  1. OTEZLA [Suspect]
     Active Substance: APREMILAST
     Indication: NAIL PSORIASIS
     Dosage: 60 MILLIGRAM
     Route: 048

REACTIONS (4)
  - Hypoaesthesia [Unknown]
  - Rhinorrhoea [Unknown]
  - Muscle spasms [Unknown]
  - Headache [Unknown]
